FAERS Safety Report 12712294 (Version 1)
Quarter: 2016Q3

REPORT INFORMATION
  Report Type: Spontaneous
  Country: DE (occurrence: DE)
  Receive Date: 20160902
  Receipt Date: 20160902
  Transmission Date: 20161109
  Serious: Yes (Life-Threatening, Hospitalization)
  Sender: FDA-Public Use
  Company Number: DE-B.I. PHARMACEUTICALS,INC./RIDGEFIELD-2016-BI-56982DE

PATIENT
  Sex: Male

DRUGS (1)
  1. PRADAXA [Suspect]
     Active Substance: DABIGATRAN ETEXILATE MESYLATE
     Indication: PRODUCT USED FOR UNKNOWN INDICATION
     Route: 065

REACTIONS (15)
  - Infectious colitis [Unknown]
  - Haemorrhagic anaemia [Unknown]
  - Vomiting [Unknown]
  - Fatigue [Unknown]
  - Lower gastrointestinal haemorrhage [Recovered/Resolved]
  - Gastroenteritis [Unknown]
  - Blood pressure decreased [Recovered/Resolved]
  - Haematochezia [Unknown]
  - Diarrhoea [Unknown]
  - Leukocytosis [Unknown]
  - Acute kidney injury [Unknown]
  - Metabolic acidosis [Unknown]
  - Melaena [Unknown]
  - Dehydration [Unknown]
  - Aggression [Unknown]
